FAERS Safety Report 11137204 (Version 1)
Quarter: 2015Q2

REPORT INFORMATION
  Report Type: Spontaneous
  Country: JP (occurrence: JP)
  Receive Date: 20150526
  Receipt Date: 20150526
  Transmission Date: 20150821
  Serious: Yes (Other)
  Sender: FDA-Public Use
  Company Number: JP-MYLANLABS-2015M1017078

PATIENT

DRUGS (9)
  1. GABAPENTIN. [Suspect]
     Active Substance: GABAPENTIN
     Indication: NEURALGIA
     Dosage: INTERNAL USE; 600MG/D, INCREASED TO 1200MG/D OVER APPROXIMATELY 1W
     Route: 050
  2. EPALRESTAT [Concomitant]
     Active Substance: EPALRESTAT
     Indication: NEURALGIA
     Dosage: 150MG
     Route: 065
  3. ZALTOPROFEN [Concomitant]
     Active Substance: ZALTOPROFEN
     Indication: NEURALGIA
     Dosage: 240MG
     Route: 065
  4. LIDOCAINE. [Concomitant]
     Active Substance: LIDOCAINE
     Indication: NEURALGIA
     Dosage: 4%
     Route: 042
  5. GABAPENTIN. [Suspect]
     Active Substance: GABAPENTIN
     Dosage: 1200MG/D
     Route: 050
  6. MEXILETINE [Concomitant]
     Active Substance: MEXILETINE
     Indication: NEURALGIA
     Dosage: 300MG
     Route: 065
  7. IMIPRAMINE [Concomitant]
     Active Substance: IMIPRAMINE
     Indication: NEURALGIA
     Dosage: 30MG
     Route: 065
  8. NEUROTROPIN                        /00398601/ [Concomitant]
     Indication: NEURALGIA
     Dosage: 16 UNITS
     Route: 065
  9. MECOBALAMIN [Concomitant]
     Active Substance: METHYLCOBALAMIN
     Indication: NEURALGIA
     Dosage: 1500MCG
     Route: 065

REACTIONS (1)
  - Leukopenia [Unknown]
